FAERS Safety Report 15736885 (Version 4)
Quarter: 2019Q1

REPORT INFORMATION
  Report Type: Spontaneous
  Country: US (occurrence: US)
  Receive Date: 20181218
  Receipt Date: 20190214
  Transmission Date: 20190417
  Serious: Yes (Hospitalization)
  Sender: FDA-Public Use
  Company Number: US-VERTEX PHARMACEUTICALS-2018-009536

PATIENT
  Age: 32 Year
  Sex: Male

DRUGS (47)
  1. MAGNESIUM OXIDE. [Concomitant]
     Active Substance: MAGNESIUM OXIDE
  2. AZITHROMYCIN ANHYDROUS. [Concomitant]
     Active Substance: AZITHROMYCIN ANHYDROUS
  3. CREON [Concomitant]
     Active Substance: PANCRELIPASE AMYLASE\PANCRELIPASE LIPASE\PANCRELIPASE PROTEASE
  4. CRESEMBA [Concomitant]
     Active Substance: ISAVUCONAZONIUM SULFATE
  5. PREDNISONE. [Concomitant]
     Active Substance: PREDNISONE
  6. VENLAFAXINE [Concomitant]
     Active Substance: VENLAFAXINE HYDROCHLORIDE
  7. CALCITRATE [Concomitant]
     Active Substance: CALCIUM CITRATE
  8. PULMOZYME [Concomitant]
     Active Substance: DORNASE ALFA
  9. LORAZEPAM. [Concomitant]
     Active Substance: LORAZEPAM
  10. VORICONAZOLE. [Concomitant]
     Active Substance: VORICONAZOLE
  11. NOVOLIN [Concomitant]
     Active Substance: INSULIN HUMAN
  12. MYCOPHENOLATE [Concomitant]
     Active Substance: MYCOPHENOLIC ACID
  13. VALGANCICLOVIR. [Concomitant]
     Active Substance: VALGANCICLOVIR
  14. PANTOPRAZOLE [Concomitant]
     Active Substance: PANTOPRAZOLE
  15. CAYSTON [Concomitant]
     Active Substance: AZTREONAM
  16. POTASSIUM CHLORIDE. [Concomitant]
     Active Substance: POTASSIUM CHLORIDE
  17. VITAMIN D3 [Concomitant]
     Active Substance: CHOLECALCIFEROL
  18. FUROSEMIDE. [Concomitant]
     Active Substance: FUROSEMIDE
  19. VITAMIN C [Concomitant]
     Active Substance: ASCORBIC ACID
  20. PHYTONADIONE. [Concomitant]
     Active Substance: PHYTONADIONE
  21. FEROSUL [Concomitant]
  22. SULFAMETHOXAZOLE AND TRIMETHOPRIM [Concomitant]
     Active Substance: SULFAMETHOXAZOLE\TRIMETHOPRIM
  23. ENOXAPARIN [Concomitant]
     Active Substance: ENOXAPARIN
  24. RITALIN [Concomitant]
     Active Substance: METHYLPHENIDATE HYDROCHLORIDE
  25. HUMALOG [Concomitant]
     Active Substance: INSULIN LISPRO
  26. FOLIC ACID. [Concomitant]
     Active Substance: FOLIC ACID
  27. MIRTAZAPINE. [Concomitant]
     Active Substance: MIRTAZAPINE
  28. NOVOLOG [Concomitant]
     Active Substance: INSULIN ASPART
  29. TRAMADOL. [Concomitant]
     Active Substance: TRAMADOL
  30. TOBRAMYCIN. [Concomitant]
     Active Substance: TOBRAMYCIN
  31. MINOCYCLINE [Concomitant]
     Active Substance: MINOCYCLINE\MINOCYCLINE HYDROCHLORIDE
  32. LINEZOLID. [Concomitant]
     Active Substance: LINEZOLID
  33. ALPRAZOLAM. [Concomitant]
     Active Substance: ALPRAZOLAM
  34. GAVILYTE G [Concomitant]
     Active Substance: POLYETHYLENE GLYCOL 3350\POTASSIUM CHLORIDE\SODIUM BICARBONATE\SODIUM CHLORIDE\SODIUM SULFATE ANHYDROUS
  35. BUDESONIDE. [Concomitant]
     Active Substance: BUDESONIDE
  36. LANTUS [Concomitant]
     Active Substance: INSULIN GLARGINE
  37. METRIX [Concomitant]
  38. CIPROFLOXACIN. [Concomitant]
     Active Substance: CIPROFLOXACIN
  39. ONDANSETRON [Concomitant]
     Active Substance: ONDANSETRON
  40. DOK [Concomitant]
     Active Substance: DOCUSATE SODIUM
  41. METOPROL XL [Concomitant]
  42. TACROLIMUS. [Concomitant]
     Active Substance: TACROLIMUS
  43. ALBUTEROL                          /00139501/ [Concomitant]
     Active Substance: ALBUTEROL
  44. EFFEXOR [Concomitant]
     Active Substance: VENLAFAXINE HYDROCHLORIDE
  45. ORKAMBI [Suspect]
     Active Substance: IVACAFTOR\LUMACAFTOR
     Indication: CYSTIC FIBROSIS
     Dosage: 400-250 MG, BID
     Route: 048
     Dates: start: 20150818, end: 2018
  46. DRONABINOL. [Concomitant]
     Active Substance: DRONABINOL
  47. ZINC SULFATE [Concomitant]
     Active Substance: ZINC SULFATE\ZINC SULFATE ANHYDROUS

REACTIONS (1)
  - Lung transplant [Unknown]

NARRATIVE: CASE EVENT DATE: 201811
